FAERS Safety Report 5740046-4 (Version None)
Quarter: 2008Q2

REPORT INFORMATION
  Report Type: 
  Country: None (occurrence: None)
  Receive Date: 20080516
  Receipt Date: 20080507
  Transmission Date: 20081010
  Serious: Yes (Life-Threatening, Hospitalization)
  Sender: FDA-Public Use
  Company Number: DE-JNJFOC-20050603656

PATIENT
  Age: 41 Year
  Sex: Female
  Weight: 58 kg

DRUGS (2)
  1. REMICADE [Suspect]
     Indication: ANKYLOSING SPONDYLITIS
     Dosage: 5 MG/KG
     Route: 042
  2. METHOTREXATE [Suspect]
     Indication: ANKYLOSING SPONDYLITIS

REACTIONS (2)
  - DISSEMINATED TUBERCULOSIS [None]
  - RESPIRATORY FAILURE [None]
